FAERS Safety Report 18495687 (Version 2)
Quarter: 2020Q4

REPORT INFORMATION
  Report Type: Spontaneous
  Country: US (occurrence: US)
  Receive Date: 20201112
  Receipt Date: 20201201
  Transmission Date: 20210114
  Serious: Yes (Hospitalization, Other)
  Sender: FDA-Public Use
  Company Number: US-APOTEX-2020AP021466

PATIENT
  Age: 67 Year
  Sex: Female

DRUGS (7)
  1. TRAMADOL. [Suspect]
     Active Substance: TRAMADOL
     Indication: PAIN
     Dosage: UPTO 150 MG/ DAY
     Route: 065
  2. GABAPENTIN. [Concomitant]
     Active Substance: GABAPENTIN
     Indication: PAIN
     Dosage: UNK
     Route: 065
  3. MARIJUANA [Concomitant]
     Active Substance: CANNABIS SATIVA SUBSP. INDICA TOP
     Indication: PAIN
     Dosage: UNK
     Route: 065
  4. TERIPARATIDE [Concomitant]
     Active Substance: TERIPARATIDE
     Indication: PRODUCT USED FOR UNKNOWN INDICATION
     Dosage: UNK
     Route: 065
  5. LEVOTHYROXINE. [Concomitant]
     Active Substance: LEVOTHYROXINE
     Indication: PRODUCT USED FOR UNKNOWN INDICATION
     Dosage: UNK
     Route: 065
  6. ALBUTEROL [SALBUTAMOL] [Concomitant]
     Active Substance: ALBUTEROL
     Indication: PRODUCT USED FOR UNKNOWN INDICATION
     Dosage: UNK
     Route: 065
  7. REMIFENTANIL [Suspect]
     Active Substance: REMIFENTANIL
     Indication: PRODUCT USED FOR UNKNOWN INDICATION
     Dosage: 0.1-0.05 MCG/KG/MIN
     Route: 042

REACTIONS (1)
  - Serotonin syndrome [Recovered/Resolved]

NARRATIVE: CASE EVENT DATE: 20191015
